FAERS Safety Report 25266725 (Version 1)
Quarter: 2025Q2

REPORT INFORMATION
  Report Type: Spontaneous
  Country: US (occurrence: US)
  Receive Date: 20250505
  Receipt Date: 20250505
  Transmission Date: 20250716
  Serious: No
  Sender: ROCHE
  Company Number: US-ROCHE-10000269250

PATIENT
  Age: 75 Year
  Sex: Female
  Weight: 40.82 kg

DRUGS (7)
  1. ACTEMRA [Suspect]
     Active Substance: TOCILIZUMAB
     Indication: Scleroderma
     Route: 058
     Dates: start: 202409
  2. ACTEMRA [Suspect]
     Active Substance: TOCILIZUMAB
  3. OMEPRAZOLE [Concomitant]
     Active Substance: OMEPRAZOLE
     Indication: Gastrooesophageal reflux disease
     Route: 048
  4. AMLODIPINE [Concomitant]
     Active Substance: AMLODIPINE BESYLATE
     Indication: Hypertension
     Route: 048
  5. ROSUVASTATIN [Concomitant]
     Active Substance: ROSUVASTATIN
     Indication: Blood cholesterol increased
     Route: 048
  6. VITAMIN D3 [Concomitant]
     Active Substance: CHOLECALCIFEROL
     Indication: Vitamin D deficiency
     Route: 048
  7. VITAMIN B COMPLEX WITH C [Concomitant]
     Active Substance: ASCORBIC ACID\CALCIUM PANTOTHENATE\CYANOCOBALAMIN\NIACINAMIDE\PYRIDOXINE HYDROCHLORIDE\RIBOFLAVIN\TH
     Route: 048

REACTIONS (3)
  - Off label use [Unknown]
  - Needle issue [Unknown]
  - No adverse event [Unknown]

NARRATIVE: CASE EVENT DATE: 20240901
